FAERS Safety Report 21487677 (Version 1)
Quarter: 2022Q4

REPORT INFORMATION
  Report Type: Spontaneous
  Country: CA (occurrence: CA)
  Receive Date: 20221020
  Receipt Date: 20221020
  Transmission Date: 20230112
  Serious: Yes (Death)
  Sender: FDA-Public Use
  Company Number: CA-TEVA-2022-CA-2817355

PATIENT
  Age: 81 Year
  Sex: Male
  Weight: 65 kg

DRUGS (2)
  1. PREDNISONE [Suspect]
     Active Substance: PREDNISONE
     Indication: Prostate cancer
     Dosage: 10 MILLIGRAM DAILY;
     Route: 048
  2. TAXOTERE [Suspect]
     Active Substance: DOCETAXEL
     Indication: Prostate cancer
     Route: 042

REACTIONS (8)
  - Beta haemolytic streptococcal infection [Fatal]
  - Dehydration [Fatal]
  - Depressed level of consciousness [Fatal]
  - Pain [Fatal]
  - Septic shock [Fatal]
  - Vomiting [Fatal]
  - Culture urine positive [Fatal]
  - Weight decreased [Fatal]
